FAERS Safety Report 9160125 (Version 1)
Quarter: 2013Q1

REPORT INFORMATION
  Report Type: Spontaneous
  Country: US (occurrence: US)
  Receive Date: 20130313
  Receipt Date: 20130313
  Transmission Date: 20140127
  Serious: No
  Sender: FDA-Public Use
  Company Number: US-TEVA-391393USA

PATIENT
  Sex: Female

DRUGS (6)
  1. COPAXONE [Suspect]
     Dosage: DAILY
  2. FOSAMAX [Concomitant]
  3. MULTIVITAMIN [Concomitant]
  4. VITAMIN D [Concomitant]
  5. OMEPRAZOLE [Concomitant]
  6. DALFAMPRIDINE [Concomitant]

REACTIONS (2)
  - Injection site mass [Unknown]
  - Injection site reaction [Unknown]
